FAERS Safety Report 6161981-1 (Version None)
Quarter: 2009Q2

REPORT INFORMATION
  Report Type: 
  Country: None (occurrence: None)
  Receive Date: 20090417
  Receipt Date: 20090417
  Transmission Date: 20091009
  Serious: Yes (Death)
  Sender: FDA-Public Use
  Company Number: None

PATIENT
  Age: 49 Year
  Sex: Female
  Weight: 63.5036 kg

DRUGS (3)
  1. AFEDITAB ELN 60 WATSON PHARMACUTICALS [Suspect]
     Indication: HYPERTENSION
     Dosage: 60 MG SHE ONLY TOOK 2X
     Dates: start: 20081110, end: 20081111
  2. AFEDITAB ELN 60 WATSON PHARMACUTICALS [Suspect]
     Indication: HYPERTENSION
     Dosage: 60 MG SHE ONLY TOOK 2X
     Dates: start: 20081122, end: 20081123
  3. NIFEDPINE ER [Concomitant]

REACTIONS (7)
  - CARDIAC ARREST [None]
  - COMPLICATIONS OF TRANSPLANTED KIDNEY [None]
  - EYE SWELLING [None]
  - HIP SWELLING [None]
  - INFLUENZA LIKE ILLNESS [None]
  - PRODUCT SUBSTITUTION ISSUE [None]
  - SWELLING FACE [None]
